FAERS Safety Report 5218431-9 (Version None)
Quarter: 2006Q4

REPORT INFORMATION
  Report Type: 
  Country: None (occurrence: None)
  Receive Date: 20061201
  Receipt Date: 20060714
  Transmission Date: 20070319
  Serious: Yes (Other)
  Sender: FDA-Public Use
  Company Number: PHEH2006US09071

PATIENT
  Age: 49 Year
  Sex: Female

DRUGS (2)
  1. LAMISIL [Suspect]
     Indication: NAIL TINEA
     Dosage: 250 MG, QD, ORAL
     Route: 048
     Dates: end: 20060628
  2. PRILOSEC [Concomitant]

REACTIONS (3)
  - AGEUSIA [None]
  - DECREASED APPETITE [None]
  - WEIGHT DECREASED [None]
